FAERS Safety Report 20125847 (Version 1)
Quarter: 2021Q4

REPORT INFORMATION
  Report Type: Spontaneous
  Country: PT (occurrence: PT)
  Receive Date: 20211129
  Receipt Date: 20211129
  Transmission Date: 20220303
  Serious: Yes (Other)
  Sender: FDA-Public Use
  Company Number: PT-SA-2021SA391709

PATIENT
  Age: 59 Year
  Sex: Male

DRUGS (1)
  1. DUPILUMAB [Suspect]
     Active Substance: DUPILUMAB
     Indication: Dermatitis atopic
     Dosage: 300 MG, QOW

REACTIONS (7)
  - Meningoencephalitis herpetic [Recovered/Resolved]
  - Disorientation [Recovered/Resolved]
  - Epileptic encephalopathy [Recovered/Resolved]
  - Confusional state [Recovered/Resolved]
  - Urinary incontinence [Recovered/Resolved]
  - Abnormal dreams [Recovered/Resolved]
  - Headache [Recovered/Resolved]
